FAERS Safety Report 14213744 (Version 1)
Quarter: 2017Q4

REPORT INFORMATION
  Report Type: Report from Study
  Country: JP (occurrence: JP)
  Receive Date: 20171122
  Receipt Date: 20171122
  Transmission Date: 20180321
  Serious: Yes (Other)
  Sender: FDA-Public Use
  Company Number: JP-SUN PHARMACEUTICAL INDUSTRIES LTD-2017RR-153211

PATIENT
  Age: 75 Year
  Sex: Male

DRUGS (2)
  1. TS-1 [Suspect]
     Active Substance: GIMERACIL\OTERACIL\TEGAFUR
     Indication: GASTRIC CANCER STAGE IV
     Dosage: TWO DOSES FOR 14 CONSECUTIVE DAYS FOLLOWED BY 7 DAYS^ WASHOUT, FOR 6 COURSES
     Route: 065
  2. OXALIPLATIN. [Suspect]
     Active Substance: OXALIPLATIN
     Indication: GASTRIC CANCER STAGE IV
     Dosage: 130 MG/M2, ON DAY 1; REPEATED EVERY 21 DAYS, FOR 6 COURSES
     Route: 041

REACTIONS (2)
  - Drug effect incomplete [Unknown]
  - Neuropathy peripheral [Unknown]
